FAERS Safety Report 5854145-X (Version None)
Quarter: 2008Q3

REPORT INFORMATION
  Report Type: 
  Country: None (occurrence: None)
  Receive Date: 20080822
  Receipt Date: 20080815
  Transmission Date: 20090109
  Serious: Yes (Hospitalization)
  Sender: FDA-Public Use
  Company Number: US-ASTRAZENECA-2008UW16736

PATIENT
  Age: 64 Year
  Sex: Male
  Weight: 105.2 kg

DRUGS (5)
  1. CRESTOR [Suspect]
     Indication: BLOOD CHOLESTEROL INCREASED
     Route: 048
  2. AVANDIA [Suspect]
  3. BENICAR [Concomitant]
  4. JANAMET [Concomitant]
  5. PLAVIX [Concomitant]

REACTIONS (6)
  - ARTHRALGIA [None]
  - BLOOD GLUCOSE DECREASED [None]
  - BLOOD PRESSURE DECREASED [None]
  - DIZZINESS [None]
  - MYOCARDIAL INFARCTION [None]
  - STENT PLACEMENT [None]
